FAERS Safety Report 11847675 (Version 1)
Quarter: 2015Q4

REPORT INFORMATION
  Report Type: Spontaneous
  Country: US (occurrence: US)
  Receive Date: 20151217
  Receipt Date: 20151217
  Transmission Date: 20160305
  Serious: Yes (Hospitalization)
  Sender: FDA-Public Use
  Company Number: US-FRESENIUS KABI-FK201506560

PATIENT
  Age: 28 Year
  Sex: Female

DRUGS (2)
  1. LEVOFLOXACIN (MANUFACTURER UNKNOWN) [Suspect]
     Active Substance: LEVOFLOXACIN
     Route: 065
  2. LEVOFLOXACIN (MANUFACTURER UNKNOWN) [Suspect]
     Active Substance: LEVOFLOXACIN
     Indication: SINUSITIS
     Route: 065

REACTIONS (8)
  - Dry eye [Unknown]
  - Dyspnoea [Unknown]
  - Blood glucose abnormal [Unknown]
  - Depressed level of consciousness [Unknown]
  - Gastrointestinal disorder [Unknown]
  - Visual impairment [Unknown]
  - Neuropathy peripheral [Unknown]
  - Cardiovascular symptom [Unknown]
